FAERS Safety Report 14629054 (Version 1)
Quarter: 2018Q1

REPORT INFORMATION
  Report Type: Spontaneous
  Country: AD (occurrence: AD)
  Receive Date: 20180313
  Receipt Date: 20180313
  Transmission Date: 20180509
  Serious: Yes (Hospitalization)
  Sender: FDA-Public Use
  Company Number: AD-ROCHE-2082659

PATIENT
  Sex: Female

DRUGS (1)
  1. AVASTIN [Suspect]
     Active Substance: BEVACIZUMAB
     Indication: BREAST NEOPLASM
     Route: 065

REACTIONS (3)
  - Hyperbilirubinaemia [Unknown]
  - Jaundice cholestatic [Unknown]
  - Transaminases increased [Unknown]
